FAERS Safety Report 5395627-7 (Version None)
Quarter: 2007Q3

REPORT INFORMATION
  Report Type: 
  Country: None (occurrence: None)
  Receive Date: 20070720
  Receipt Date: 20070713
  Transmission Date: 20080115
  Serious: Yes (Death)
  Sender: FDA-Public Use
  Company Number: 2007-161376-NL

PATIENT
  Sex: Female

DRUGS (3)
  1. MARVELON [Suspect]
     Indication: IN VITRO FERTILISATION
     Dosage: 1 DF ORAL
     Route: 048
     Dates: start: 20070101
  2. MARVELON [Suspect]
     Indication: MENSTRUAL CYCLE MANAGEMENT
     Dosage: 1 DF ORAL
     Route: 048
     Dates: start: 20070101
  3. MARVELON [Suspect]
     Indication: PREOPERATIVE CARE
     Dosage: 1 DF ORAL
     Route: 048
     Dates: start: 20070101

REACTIONS (1)
  - CEREBRAL VENOUS THROMBOSIS [None]
